FAERS Safety Report 25085643 (Version 1)
Quarter: 2025Q1

REPORT INFORMATION
  Report Type: Spontaneous
  Country: US (occurrence: None)
  Receive Date: 20250315
  Receipt Date: 20250315
  Transmission Date: 20250409
  Serious: No
  Sender: FDA-CTU
  Company Number: None

PATIENT
  Age: 70 Year
  Sex: Female

DRUGS (7)
  1. GAMMAGARD LIQUID [Suspect]
     Active Substance: HUMAN IMMUNOGLOBULIN G
     Indication: Myositis
     Route: 042
  2. FAMOTIDINE [Concomitant]
     Active Substance: FAMOTIDINE
  3. LORAZEPAM [Concomitant]
     Active Substance: LORAZEPAM
  4. PREDNISONE [Concomitant]
     Active Substance: PREDNISONE
  5. AMLODIPINE [Concomitant]
     Active Substance: AMLODIPINE BESYLATE
  6. VITAMIN B12 [Concomitant]
     Active Substance: CYANOCOBALAMIN
  7. CALCIUM CARBONATE\CHOLECALCIFEROL [Concomitant]
     Active Substance: CALCIUM CARBONATE\CHOLECALCIFEROL

REACTIONS (5)
  - Oral discomfort [None]
  - Throat irritation [None]
  - Oral discomfort [None]
  - Eye pruritus [None]
  - Pruritus [None]

NARRATIVE: CASE EVENT DATE: 20250314
